FAERS Safety Report 8374338-X (Version None)
Quarter: 2012Q2

REPORT INFORMATION
  Report Type: 
  Country: None (occurrence: None)
  Receive Date: 20120521
  Receipt Date: 20120507
  Transmission Date: 20120825
  Serious: No
  Sender: FDA-Public Use
  Company Number: US-ASTRAZENECA-2001UW04748

PATIENT
  Age: 73 Year
  Sex: Female
  Weight: 76.2 kg

DRUGS (6)
  1. NEXIUM [Suspect]
     Indication: GASTROOESOPHAGEAL REFLUX DISEASE
     Route: 048
     Dates: start: 20010428
  2. LIPITOR [Concomitant]
  3. CALCIUM [Concomitant]
  4. PRILOSEC [Suspect]
     Route: 048
  5. VALIUM [Concomitant]
  6. LIBRAX [Concomitant]

REACTIONS (3)
  - INTENTIONAL DRUG MISUSE [None]
  - DRUG INEFFECTIVE [None]
  - DIARRHOEA [None]
